FAERS Safety Report 13338013 (Version 2)
Quarter: 2017Q2

REPORT INFORMATION
  Report Type: Spontaneous
  Country: HU (occurrence: HU)
  Receive Date: 20170315
  Receipt Date: 20170410
  Transmission Date: 20170830
  Serious: Yes (Hospitalization)
  Sender: FDA-Public Use
  Company Number: HU-PFIZER INC-2017062786

PATIENT
  Age: 44 Year
  Sex: Male

DRUGS (10)
  1. SUTENT [Suspect]
     Active Substance: SUNITINIB MALATE
     Indication: CLEAR CELL RENAL CELL CARCINOMA
     Dosage: 50 MG, CYCLIC, DAILY 1X, ACCORDING TO 4/2 SCHEMA
     Route: 048
     Dates: start: 20170131, end: 20170224
  2. DUROGESIC [Concomitant]
     Active Substance: FENTANYL
     Dosage: 50 UG (72HOURS)
     Dates: start: 20170215
  3. MALTOFER /00023548/ [Concomitant]
     Dosage: 100 MG, 2X/DAY
     Dates: start: 20170112
  4. DUROGESIC [Concomitant]
     Active Substance: FENTANYL
     Dosage: 25 UG (72HOURS)
  5. APO-FAMOTIDINE [Concomitant]
     Indication: HYPERCHLORHYDRIA
     Dosage: 40 MG, IN THE MORNING
  6. RALGEN [Concomitant]
     Dosage: 4X2 TABLET
     Dates: start: 20170131
  7. BISOPROLOL [Concomitant]
     Active Substance: BISOPROLOL
     Indication: TACHYCARDIA
     Dosage: 1.25 MG, UNK
     Dates: start: 2014
  8. RANITIDINE. [Concomitant]
     Active Substance: RANITIDINE
     Indication: HYPERCHLORHYDRIA
     Dosage: 300 MG, IN THE EVENING
  9. RALGEN [Concomitant]
     Indication: PAIN
     Dosage: 3X1 TABLET
     Dates: start: 20170103
  10. MEGYRINA [Concomitant]
     Dosage: 800 MG, 1X/DAY
     Dates: start: 20170112

REACTIONS (7)
  - Nausea [Unknown]
  - Blood creatinine increased [Not Recovered/Not Resolved]
  - Condition aggravated [Not Recovered/Not Resolved]
  - Decreased appetite [Unknown]
  - Asthenia [Not Recovered/Not Resolved]
  - Bone pain [Not Recovered/Not Resolved]
  - Blood potassium increased [Unknown]

NARRATIVE: CASE EVENT DATE: 20170207
